FAERS Safety Report 5897258-9 (Version None)
Quarter: 2008Q3

REPORT INFORMATION
  Report Type: 
  Country: None (occurrence: None)
  Receive Date: 20080923
  Receipt Date: 20080908
  Transmission Date: 20090109
  Serious: Yes (Hospitalization, Other)
  Sender: FDA-Public Use
  Company Number: DSJ-2008-10879

PATIENT
  Age: 69 Year
  Sex: Female
  Weight: 55.3 kg

DRUGS (7)
  1. OLMETEC            (OLMESARTAN MEDOXOMIL) [Suspect]
     Indication: HYPERTENSION
     Dosage: 10 MG, PER ORAL
     Route: 048
     Dates: start: 20080313, end: 20080522
  2. AMLODIN OD         (AMLODIPINE BESILATE) [Concomitant]
  3. LANSOPRAZOLE [Concomitant]
  4. AMARYL [Concomitant]
  5. MAGNESIUM OXIDE (MAGNESIUM OXIDE) (MAGNESIUM OXIDE) [Concomitant]
  6. TRIAZOLAM [Concomitant]
  7. SALOBEL (ALLOPURINOL) (ALLOPURINOL) [Concomitant]

REACTIONS (2)
  - NEPHROGENIC ANAEMIA [None]
  - RENAL IMPAIRMENT [None]
